FAERS Safety Report 9659920 (Version 2)
Quarter: 2014Q1

REPORT INFORMATION
  Report Type: Spontaneous
  Country: JP (occurrence: JP)
  Receive Date: 20131031
  Receipt Date: 20140108
  Transmission Date: 20141002
  Serious: Yes (Hospitalization, Disabling, Other)
  Sender: FDA-Public Use
  Company Number: JP-TAKEDA-2013TEU001721

PATIENT
  Age: 83 Year
  Sex: Male

DRUGS (6)
  1. TACHOSIL [Suspect]
     Indication: PROPHYLAXIS
     Dosage: 1SHEET /1DAY
     Dates: start: 20130827, end: 20130827
  2. BASEN [Concomitant]
     Indication: DIABETES MELLITUS
     Dosage: 0.2 MG, TID
     Route: 048
  3. FERRUM                             /00023502/ [Concomitant]
     Indication: ANAEMIA
     Dosage: 100 MG, QD
     Route: 048
  4. WARFARIN [Concomitant]
     Indication: AORTIC VALVE STENOSIS
     Dosage: 3 MG, QD
     Route: 048
  5. RED BLOOD CELLS, CONCENTRATED [Concomitant]
  6. ALL OTHER NON-THERAPEUTIC PRODUCTS [Concomitant]
     Dosage: UNK
     Dates: start: 20130827, end: 20130828

REACTIONS (2)
  - Cerebral infarction [Recovering/Resolving]
  - Cholangitis [Recovering/Resolving]
